FAERS Safety Report 20455718 (Version 1)
Quarter: 2022Q1

REPORT INFORMATION
  Report Type: Spontaneous
  Country: US (occurrence: None)
  Receive Date: 20220210
  Receipt Date: 20220210
  Transmission Date: 20220423
  Serious: Yes (Other)
  Sender: FDA-Public Use
  Company Number: None

PATIENT
  Sex: Female

DRUGS (1)
  1. CONTRAVE [Suspect]
     Active Substance: BUPROPION HYDROCHLORIDE\NALTREXONE HYDROCHLORIDE
     Indication: Weight decreased

REACTIONS (4)
  - Influenza like illness [None]
  - Hypoaesthesia oral [None]
  - Hypoaesthesia [None]
  - Seizure [None]

NARRATIVE: CASE EVENT DATE: 20220209
